FAERS Safety Report 12398827 (Version 3)
Quarter: 2017Q1

REPORT INFORMATION
  Report Type: Spontaneous
  Country: US (occurrence: US)
  Receive Date: 20160524
  Receipt Date: 20170308
  Transmission Date: 20170428
  Serious: Yes (Hospitalization, Other)
  Sender: FDA-Public Use
  Company Number: US-PFIZER INC-2016266574

PATIENT
  Age: 37 Year
  Sex: Female

DRUGS (10)
  1. VANCOMYCIN HCL [Suspect]
     Active Substance: VANCOMYCIN HYDROCHLORIDE
     Dosage: 500- MG LOADING DOSE
     Route: 033
  2. VANCOMYCIN HCL [Suspect]
     Active Substance: VANCOMYCIN HYDROCHLORIDE
     Dosage: 50 MG PER BAG (25 MG/L) EVERY SIX HOURS
     Route: 033
  3. CALCIUM CARBONATE. [Concomitant]
     Active Substance: CALCIUM CARBONATE
     Dosage: 750 MG, (AFTER MEALS)
     Route: 048
  4. DOCUSATE [Concomitant]
     Active Substance: DOCUSATE
     Indication: CONSTIPATION
     Dosage: 100 MG, DAILY (AS NEEDED)
     Route: 048
  5. VANCOMYCIN HCL [Suspect]
     Active Substance: VANCOMYCIN HYDROCHLORIDE
     Indication: BACTERIAL INFECTION
     Dosage: 1 G, (ONE TIME LOADING DOSE)
     Route: 042
  6. ATORVASTATIN [Concomitant]
     Active Substance: ATORVASTATIN
     Dosage: 10 MG, DAILY (AT BEDTIME)
     Route: 048
  7. LISINOPRIL. [Concomitant]
     Active Substance: LISINOPRIL
     Dosage: 5 MG, DAILY
     Route: 048
  8. POLYETHYLENE GLYCOL 3350. [Concomitant]
     Active Substance: POLYETHYLENE GLYCOL 3350
     Dosage: 17 G, DAILY
     Route: 048
  9. MEROPENEM. [Concomitant]
     Active Substance: MEROPENEM
     Indication: PERITONITIS BACTERIAL
     Dosage: 1 G, DAILY (EVERY 24 HOURS, TO BE INFUSED OVER 4 HOURS)
     Route: 042
  10. AMLODIPINE [Concomitant]
     Active Substance: AMLODIPINE BESYLATE
     Dosage: 5 MG, DAILY
     Route: 048

REACTIONS (2)
  - Noninfectious peritonitis [Recovered/Resolved]
  - Hypotension [Recovered/Resolved]
